FAERS Safety Report 7524391-8 (Version None)
Quarter: 2011Q2

REPORT INFORMATION
  Report Type: 
  Country: None (occurrence: None)
  Receive Date: 20110601
  Receipt Date: 20110601
  Transmission Date: 20111010
  Serious: No
  Sender: FDA-Public Use
  Company Number: None

PATIENT
  Sex: Female

DRUGS (1)
  1. REVATIO [Suspect]
     Dosage: 20MG TID PO
     Route: 048
     Dates: start: 20110507, end: 20110511

REACTIONS (4)
  - PRURITUS [None]
  - HYPERSENSITIVITY [None]
  - CONTUSION [None]
  - SWELLING FACE [None]
